FAERS Safety Report 4808676-1 (Version None)
Quarter: 2005Q4

REPORT INFORMATION
  Report Type: 
  Country: None (occurrence: None)
  Receive Date: 20051021
  Receipt Date: 20051021
  Transmission Date: 20060501
  Serious: Yes (Hospitalization)
  Sender: FDA-Public Use
  Company Number: None

PATIENT
  Age: 85 Year
  Sex: Female
  Weight: 64.2 kg

DRUGS (1)
  1. LEVAQUIN [Suspect]

REACTIONS (3)
  - DRUG HYPERSENSITIVITY [None]
  - FACE OEDEMA [None]
  - PHARYNGEAL OEDEMA [None]
